FAERS Safety Report 7233328-0 (Version None)
Quarter: 2011Q1

REPORT INFORMATION
  Report Type: 
  Country: None (occurrence: None)
  Receive Date: 20110119
  Receipt Date: 20110111
  Transmission Date: 20110831
  Serious: Yes (Hospitalization)
  Sender: FDA-Public Use
  Company Number: JP-ROCHE-752029

PATIENT
  Sex: Male
  Weight: 69.9 kg

DRUGS (9)
  1. TAKEPRON [Concomitant]
     Route: 048
     Dates: start: 20100108
  2. VOLTAREN [Concomitant]
     Route: 048
     Dates: start: 20100108
  3. ALLELOCK [Concomitant]
     Dosage: NOTE: 10MG/DAY DURING A DAY TWICE (EVERY TWO WEEKS).
     Route: 048
     Dates: start: 20100927
  4. KETOPROFEN [Concomitant]
     Dosage: DOSE FORM: TAPE. SINGLE USE AND PROPER QUANTITY
     Route: 061
     Dates: start: 20100126
  5. ISCOTIN [Concomitant]
     Route: 048
     Dates: start: 20100223
  6. BLINDED TOCILIZUMAB [Suspect]
     Indication: RHEUMATOID ARTHRITIS
     Route: 058
     Dates: start: 20100622
  7. PREDNISOLONE [Suspect]
     Indication: RHEUMATOID ARTHRITIS
     Route: 048
     Dates: start: 20101222
  8. MAGMITT [Concomitant]
     Dosage: SINGLE USE
     Route: 048
     Dates: start: 20100324
  9. BLINDED TOCILIZUMAB [Suspect]
     Route: 042
     Dates: start: 20100622

REACTIONS (1)
  - DEEP VEIN THROMBOSIS [None]
